FAERS Safety Report 8196733-4 (Version None)
Quarter: 2012Q1

REPORT INFORMATION
  Report Type: 
  Country: None (occurrence: None)
  Receive Date: 20120309
  Receipt Date: 20120305
  Transmission Date: 20120608
  Serious: Yes (Life-Threatening, Other)
  Sender: FDA-Public Use
  Company Number: PHHO2011US03789

PATIENT
  Sex: Female
  Weight: 80 kg

DRUGS (1)
  1. GILENYA [Suspect]
     Indication: MULTIPLE SCLEROSIS
     Dosage: DOSE BLINDED
     Dates: start: 20100512

REACTIONS (4)
  - BASAL CELL CARCINOMA [None]
  - CAMPBELL DE MORGAN SPOTS [None]
  - MELANOCYTIC NAEVUS [None]
  - LENTIGO [None]
